FAERS Safety Report 9701635 (Version 2)
Quarter: 2013Q4

REPORT INFORMATION
  Report Type: Spontaneous
  Country: US (occurrence: US)
  Receive Date: 20131119
  Receipt Date: 20131119
  Transmission Date: 20140711
  Serious: Yes (Life-Threatening)
  Sender: FDA-Public Use
  Company Number: US-ORACLE-2011S1000064

PATIENT
  Age: 52 Year
  Sex: Male
  Weight: 63.5 kg

DRUGS (4)
  1. KRYSTEXXA INJECTION [Suspect]
     Indication: PRODUCT USED FOR UNKNOWN INDICATION
     Route: 042
     Dates: start: 20110810, end: 20110810
  2. KRYSTEXXA INJECTION [Suspect]
     Indication: PRODUCT USED FOR UNKNOWN INDICATION
     Route: 042
     Dates: start: 20110728, end: 20110728
  3. KRYSTEXXA INJECTION [Suspect]
     Indication: PRODUCT USED FOR UNKNOWN INDICATION
     Route: 042
     Dates: start: 20110714, end: 20110714
  4. ALLEGRA [Concomitant]
     Indication: PREMEDICATION
     Route: 048
     Dates: start: 2011, end: 2011

REACTIONS (2)
  - Anaphylactic reaction [Recovered/Resolved]
  - Therapeutic response decreased [Unknown]
